FAERS Safety Report 23298175 (Version 2)
Quarter: 2024Q1

REPORT INFORMATION
  Report Type: Spontaneous
  Country: US (occurrence: US)
  Receive Date: 20231214
  Receipt Date: 20240124
  Transmission Date: 20240410
  Serious: Yes (Hospitalization)
  Sender: FDA-Public Use
  Company Number: US-002147023-NVSC2023US260855

PATIENT
  Age: 3 Year
  Sex: Male

DRUGS (7)
  1. CANAKINUMAB [Suspect]
     Active Substance: CANAKINUMAB
     Indication: Autoinflammatory disease
     Dosage: 10 MG/KG
     Route: 065
  2. CYCLOSPORINE [Suspect]
     Active Substance: CYCLOSPORINE
     Indication: Autoinflammatory disease
     Dosage: 1 MG/KG, BID
     Route: 065
     Dates: start: 20231029
  3. METHYLPREDNISOLONE [Suspect]
     Active Substance: METHYLPREDNISOLONE
     Indication: Autoinflammatory disease
     Dosage: UNK
     Route: 065
  4. ANAKINRA [Suspect]
     Active Substance: ANAKINRA
     Indication: Product used for unknown indication
     Dosage: 80 MG
     Route: 065
     Dates: start: 20230216
  5. ANAKINRA [Suspect]
     Active Substance: ANAKINRA
     Dosage: 100 MG, QD
     Route: 065
  6. TOFACITINIB [Suspect]
     Active Substance: TOFACITINIB
     Indication: Autoinflammatory disease
     Route: 065
  7. BARICITINIB [Suspect]
     Active Substance: BARICITINIB
     Indication: Autoinflammatory disease
     Dosage: 2 MG, BID
     Route: 065
     Dates: start: 20231025

REACTIONS (5)
  - Drug ineffective [Unknown]
  - Interleukin level increased [Unknown]
  - Inflammation [Unknown]
  - Pyrexia [Unknown]
  - Rash [Unknown]
